FAERS Safety Report 25983076 (Version 1)
Quarter: 2025Q4

REPORT INFORMATION
  Report Type: Spontaneous
  Country: US (occurrence: US)
  Receive Date: 20251031
  Receipt Date: 20251031
  Transmission Date: 20260118
  Serious: Yes (Other)
  Sender: ABBVIE
  Company Number: US-ABBVIE-6521255

PATIENT
  Age: 42 Year
  Sex: Female

DRUGS (2)
  1. SKYRIZI [Suspect]
     Active Substance: RISANKIZUMAB-RZAA
     Indication: Crohn^s disease
     Route: 058
  2. SKYRIZI [Suspect]
     Active Substance: RISANKIZUMAB-RZAA
     Route: 058

REACTIONS (8)
  - Cholelithiasis [Unknown]
  - Rash macular [Unknown]
  - Rash pruritic [Unknown]
  - Fibrous histiocytoma [Unknown]
  - Neurodermatitis [Unknown]
  - Polymenorrhoea [Unknown]
  - Rash papular [Unknown]
  - Skin discharge [Unknown]

NARRATIVE: CASE EVENT DATE: 20250801
